FAERS Safety Report 18523804 (Version 2)
Quarter: 2020Q4

REPORT INFORMATION
  Report Type: Report from Study
  Country: CA (occurrence: CA)
  Receive Date: 20201119
  Receipt Date: 20201211
  Transmission Date: 20210114
  Serious: Yes (Other)
  Sender: FDA-Public Use
  Company Number: CA-TAKEDA-2020TUS049857

PATIENT
  Age: 50 Year
  Sex: Female

DRUGS (3)
  1. VEDOLIZUMAB [Suspect]
     Active Substance: VEDOLIZUMAB
     Indication: CROHN^S DISEASE
     Dosage: 300 MILLIGRAM
     Route: 042
     Dates: start: 20201027
  2. VEDOLIZUMAB [Suspect]
     Active Substance: VEDOLIZUMAB
     Dosage: 300 MILLIGRAM
     Route: 042
  3. CIPRALEX [Concomitant]
     Active Substance: ESCITALOPRAM OXALATE
     Indication: ANTIDEPRESSANT THERAPY
     Dosage: 20 MILLIGRAM, QD

REACTIONS (10)
  - Rectal haemorrhage [Unknown]
  - Insomnia [Unknown]
  - Abdominal pain lower [Unknown]
  - Abdominal pain [Unknown]
  - Fatigue [Unknown]
  - Thirst [Unknown]
  - Hepatic pain [Unknown]
  - Nausea [Unknown]
  - Headache [Unknown]
  - Flank pain [Unknown]

NARRATIVE: CASE EVENT DATE: 2020
